FAERS Safety Report 24262634 (Version 1)
Quarter: 2024Q3

REPORT INFORMATION
  Report Type: Other
  Country: HU (occurrence: HU)
  Receive Date: 20240829
  Receipt Date: 20240829
  Transmission Date: 20241016
  Serious: Yes (Death)
  Sender: ALVOGEN
  Company Number: HU-ALVOGEN-2024095348

PATIENT
  Sex: Male

DRUGS (4)
  1. DEXAMETHASONE [Suspect]
     Active Substance: DEXAMETHASONE
     Indication: Plasma cell myeloma
     Dosage: FIVE CYCLES
  2. MELPHALAN [Suspect]
     Active Substance: MELPHALAN
     Indication: Plasma cell myeloma
     Dosage: CONVENTIONAL MELPHALAN CONDITIONING (140 MG/M^2)
     Dates: start: 201910
  3. BORTEZOMIB [Suspect]
     Active Substance: BORTEZOMIB
     Indication: Plasma cell myeloma
     Dosage: FIVE CYCLES
  4. THALIDOMIDE [Suspect]
     Active Substance: THALIDOMIDE
     Indication: Plasma cell myeloma
     Dosage: FIVE CYCLES

REACTIONS (2)
  - Acute erythroid leukaemia [Fatal]
  - Off label use [Unknown]

NARRATIVE: CASE EVENT DATE: 20220801
